FAERS Safety Report 21856352 (Version 1)
Quarter: 2023Q1

REPORT INFORMATION
  Report Type: Report from Study
  Country: US (occurrence: US)
  Receive Date: 20230112
  Receipt Date: 20230112
  Transmission Date: 20230418
  Serious: Yes (Other)
  Sender: FDA-Public Use
  Company Number: US-ABBVIE-4263915

PATIENT
  Sex: Female
  Weight: 55.791 kg

DRUGS (2)
  1. HUMIRA [Suspect]
     Active Substance: ADALIMUMAB
     Indication: Crohn^s disease
     Route: 058
     Dates: start: 2012
  2. Vita b12 [Concomitant]
     Indication: Pernicious anaemia

REACTIONS (6)
  - Blood iron decreased [Recovered/Resolved]
  - Off label use [Unknown]
  - Osteopenia [Not Recovered/Not Resolved]
  - Weight decreased [Recovering/Resolving]
  - Muscular weakness [Not Recovered/Not Resolved]
  - Diarrhoea [Unknown]

NARRATIVE: CASE EVENT DATE: 20220101
